FAERS Safety Report 10065016 (Version 1)
Quarter: 2014Q1

REPORT INFORMATION
  Report Type: Spontaneous
  Country: US (occurrence: None)
  Receive Date: 20140328
  Receipt Date: 20140328
  Transmission Date: 20141002
  Serious: No
  Sender: FDA-Public Use
  Company Number: 1000052367

PATIENT
  Age: 62 Year
  Sex: Female

DRUGS (6)
  1. LINZESS [Suspect]
     Indication: IRRITABLE BOWEL SYNDROME
     Route: 048
     Dates: start: 20131212
  2. LINZESS [Suspect]
     Indication: CONSTIPATION
     Route: 048
     Dates: start: 20131212
  3. NORCO (VICODIN) [Concomitant]
  4. BUSPAR (BUSPIRONE HYDROCHLORIDE) [Concomitant]
  5. ESCITALOPRAM (ESCITALOPRAM OXALATE) (10 MILLIGRAM, TABLETS) [Concomitant]
  6. DETROL LA (TOLTERODINE L-TARTRATE) [Concomitant]

REACTIONS (1)
  - Drug ineffective [None]
